FAERS Safety Report 11455278 (Version 4)
Quarter: 2015Q3

REPORT INFORMATION
  Report Type: Spontaneous
  Country: SE (occurrence: SE)
  Receive Date: 20150903
  Receipt Date: 20150917
  Transmission Date: 20151125
  Serious: Yes (Other)
  Sender: FDA-Public Use
  Company Number: SE-ALLERGAN-1517460US

PATIENT
  Age: 81 Year
  Sex: Female

DRUGS (5)
  1. OZURDEX [Suspect]
     Active Substance: DEXAMETHASONE
     Dosage: 0.7 MG, SINGLE
     Route: 031
     Dates: start: 20150310, end: 20150310
  2. OZURDEX [Suspect]
     Active Substance: DEXAMETHASONE
     Dosage: 0.7 MG, SINGLE
     Route: 031
     Dates: start: 201403, end: 201403
  3. OZURDEX [Suspect]
     Active Substance: DEXAMETHASONE
     Indication: MACULAR OEDEMA
     Dosage: 0.7 MG, SINGLE
     Route: 031
     Dates: start: 201504, end: 201504
  4. OZURDEX [Suspect]
     Active Substance: DEXAMETHASONE
     Dosage: 0.7 MG, SINGLE
     Route: 031
     Dates: start: 201410, end: 201410
  5. LUCENTIS [Concomitant]
     Active Substance: RANIBIZUMAB
     Dosage: UNK

REACTIONS (1)
  - Retinal tear [Unknown]

NARRATIVE: CASE EVENT DATE: 20150721
